FAERS Safety Report 5400481-0 (Version None)
Quarter: 2007Q3

REPORT INFORMATION
  Report Type: 
  Country: None (occurrence: None)
  Receive Date: 20070730
  Receipt Date: 20070720
  Transmission Date: 20080115
  Serious: Yes (Life-Threatening, Hospitalization, Other)
  Sender: FDA-Public Use
  Company Number: TH-ASTRAZENECA-2004AP02539

PATIENT
  Age: 30 Year
  Sex: Female
  Weight: 60 kg

DRUGS (2)
  1. MARCAINE [Suspect]
     Indication: SPINAL ANAESTHESIA
     Route: 037
     Dates: start: 20040104, end: 20040104
  2. MORPHINE [Suspect]
     Indication: SPINAL ANAESTHESIA
     Route: 037
     Dates: start: 20040104, end: 20040104

REACTIONS (6)
  - BRADYCARDIA [None]
  - CONVULSION [None]
  - CYANOSIS [None]
  - GAZE PALSY [None]
  - HYPOTENSION [None]
  - LOSS OF CONSCIOUSNESS [None]
